FAERS Safety Report 9150217 (Version 2)
Quarter: 2013Q2

REPORT INFORMATION
  Report Type: Spontaneous
  Country: JP (occurrence: JP)
  Receive Date: 20130308
  Receipt Date: 20130424
  Transmission Date: 20140414
  Serious: Yes (Hospitalization)
  Sender: FDA-Public Use
  Company Number: JP-B.I. PHARMACEUTICALS,INC./RIDGEFIELD-2013-BI-06021NB

PATIENT
  Age: 75 Year
  Sex: Female

DRUGS (4)
  1. MOBIC [Suspect]
     Indication: RHEUMATIC DISORDER
     Dosage: 10 MG
     Route: 048
     Dates: start: 20120106, end: 20120110
  2. RHEUMATREX [Suspect]
     Indication: RHEUMATIC DISORDER
     Route: 048
     Dates: start: 20090626, end: 20120110
  3. PREDNISOLONE [Concomitant]
     Indication: RHEUMATIC DISORDER
     Dosage: 2 MG
     Route: 048
     Dates: start: 20090626
  4. FOLIAMIN [Concomitant]
     Indication: RHEUMATIC DISORDER
     Route: 048
     Dates: start: 20090626, end: 20120110

REACTIONS (1)
  - Pancytopenia [Recovered/Resolved]
